FAERS Safety Report 8322357-1 (Version None)
Quarter: 2012Q2

REPORT INFORMATION
  Report Type: 
  Country: None (occurrence: None)
  Receive Date: 20120426
  Receipt Date: 20120418
  Transmission Date: 20120825
  Serious: No
  Sender: FDA-Public Use
  Company Number: AXC-2012-000135

PATIENT
  Age: 1 Day
  Sex: Female

DRUGS (9)
  1. ASPIRIN [Suspect]
     Indication: FOETAL EXPOSURE DURING PREGNANCY
     Dosage: 250 MG, QD, TRANSPLACENTAL
     Route: 064
  2. JOSACINE   /00273602/ (JOSAMYCIN PROPIONATE) [Suspect]
     Indication: FOETAL EXPOSURE DURING PREGNANCY
     Route: 064
  3. CELLCEPT [Suspect]
     Indication: FOETAL EXPOSURE DURING PREGNANCY
     Dosage: 250 MG, BID, TRANSPLACENTAL
     Route: 064
  4. INNOHEP 1000 (TINZAPARIN SODIUM) SOLUTION FOR INJECTION, 10000IU/.5ML [Suspect]
     Indication: FOETAL EXPOSURE DURING PREGNANCY
     Dosage: 0.5 MG, QD, TRANSPLACENTAL
     Route: 064
     Dates: end: 20090515
  5. PROGRAF [Suspect]
     Indication: FOETAL EXPOSURE DURING PREGNANCY
     Dosage: 2.5 G, QD, TRANSPLACENTAL
     Route: 064
     Dates: end: 20090515
  6. PENTASA [Suspect]
     Indication: FOETAL EXPOSURE DURING PREGNANCY
     Route: 064
  7. URSODIOL [Suspect]
     Indication: FOETAL EXPOSURE DURING PREGNANCY
     Dosage: 200 MG, QID, TRANSPLACENTAL
     Route: 064
     Dates: end: 20090515
  8. CALCIUM CARBONATE [Suspect]
     Indication: FOETAL EXPOSURE DURING PREGNANCY
     Dosage: 1 DF, QD, TRANSPLACENTAL
     Route: 064
     Dates: end: 20090515
  9. PREDNISOLONE [Suspect]
     Indication: FOETAL EXPOSURE DURING PREGNANCY
     Route: 064

REACTIONS (4)
  - CAESAREAN SECTION [None]
  - DYSMORPHISM [None]
  - NO ADVERSE EVENT [None]
  - MATERNAL DRUGS AFFECTING FOETUS [None]
